FAERS Safety Report 7756494-7 (Version None)
Quarter: 2011Q3

REPORT INFORMATION
  Report Type: 
  Country: None (occurrence: None)
  Receive Date: 20110916
  Receipt Date: 20110907
  Transmission Date: 20111222
  Serious: Yes (Hospitalization)
  Sender: FDA-Public Use
  Company Number: KR-MPIJNJ-2011-04148

PATIENT

DRUGS (10)
  1. ACETYLCYSTEINE [Concomitant]
     Indication: PRODUCTIVE COUGH
     Dosage: 200 MG, UNK
     Route: 048
     Dates: start: 20110531, end: 20110728
  2. MEGESTROL ACETATE [Concomitant]
     Indication: PROPHYLAXIS
     Dosage: 40 MG, UNK
     Route: 048
     Dates: start: 20110528
  3. GABAPENTIN [Concomitant]
     Indication: NEUROPATHY PERIPHERAL
     Dosage: 100 MG, UNK
     Route: 048
     Dates: start: 20110706, end: 20110715
  4. VELCADE [Suspect]
     Indication: MULTIPLE MYELOMA
     Dosage: 1.3 MG/M2, CYCLIC
     Route: 065
     Dates: start: 20110603, end: 20110725
  5. SMECTITE [Concomitant]
     Indication: DIARRHOEA
     Dosage: 3 G, UNK
     Route: 048
     Dates: start: 20110601
  6. MELPHALAN [Concomitant]
     Indication: MULTIPLE MYELOMA
     Dosage: 15 MG, UNK
     Route: 048
     Dates: start: 20110705, end: 20110708
  7. ARESTAL                            /00384303/ [Concomitant]
     Indication: DIARRHOEA
     Dosage: 1 MG, UNK
     Route: 048
     Dates: start: 20110603
  8. VELCADE [Suspect]
     Dosage: 1.0 MG/M2, CYCLIC
     Route: 065
     Dates: start: 20110728, end: 20110812
  9. GLIMEL                             /00145301/ [Concomitant]
     Indication: DIABETES MELLITUS
     Dosage: 1 MG, UNK
     Route: 048
     Dates: start: 20110601, end: 20110827
  10. CODEINE SULFATE [Concomitant]
     Indication: PAIN
     Dosage: 30 MG, UNK
     Route: 048
     Dates: start: 20110620, end: 20110731

REACTIONS (1)
  - DELIRIUM [None]
